FAERS Safety Report 8357457-3 (Version None)
Quarter: 2012Q2

REPORT INFORMATION
  Report Type: 
  Country: None (occurrence: None)
  Receive Date: 20120510
  Receipt Date: 20120430
  Transmission Date: 20120825
  Serious: Yes (Other)
  Sender: FDA-Public Use
  Company Number: TR-1191776

PATIENT
  Age: 25 Year
  Sex: Female

DRUGS (1)
  1. ALCAINE [Suspect]
     Indication: EYE PAIN
     Dosage: (OPHTHALMIC)
     Route: 047

REACTIONS (2)
  - CORNEAL EROSION [None]
  - CORNEAL PERFORATION [None]
